FAERS Safety Report 13545765 (Version 1)
Quarter: 2017Q2

REPORT INFORMATION
  Report Type: Spontaneous
  Country: US (occurrence: US)
  Receive Date: 20170515
  Receipt Date: 20170515
  Transmission Date: 20170830
  Serious: No
  Sender: FDA-Public Use
  Company Number: US-WARNER CHILCOTT-2016-001434

PATIENT
  Age: 65 Year
  Sex: Female

DRUGS (5)
  1. TUMS [Suspect]
     Active Substance: CALCIUM CARBONATE
     Indication: THYROIDECTOMY
     Dosage: 2 TABLETS DAILY
     Route: 048
     Dates: start: 201606
  2. ACTONEL [Suspect]
     Active Substance: RISEDRONATE SODIUM
     Indication: OSTEOPOROSIS
     Dosage: 150 MG ONCE MONTHLY
     Route: 048
     Dates: start: 2015
  3. ACTONEL [Suspect]
     Active Substance: RISEDRONATE SODIUM
     Indication: BONE LOSS
  4. LEVOTHYROXINE. [Concomitant]
     Active Substance: LEVOTHYROXINE
     Indication: THYROIDECTOMY
     Dosage: 1 DF, QD
     Route: 048
     Dates: start: 201606
  5. ASPIRIN. [Concomitant]
     Active Substance: ASPIRIN
     Dosage: 0.5 TABLET DAILY
     Route: 048

REACTIONS (1)
  - Vomiting [Recovered/Resolved]

NARRATIVE: CASE EVENT DATE: 20160623
